FAERS Safety Report 7429036-3 (Version None)
Quarter: 2011Q2

REPORT INFORMATION
  Report Type: 
  Country: None (occurrence: None)
  Receive Date: 20110421
  Receipt Date: 20110412
  Transmission Date: 20111010
  Serious: Yes (Life-Threatening, Hospitalization, Disabling)
  Sender: FDA-Public Use
  Company Number: DK-ROCHE-765630

PATIENT
  Sex: Male

DRUGS (3)
  1. AVASTIN [Suspect]
     Indication: RECTAL CANCER
     Dosage: INDICATION ALSO REPORTED AS: COLON CANCER
     Route: 042
  2. XELODA [Suspect]
     Indication: RECTAL CANCER
     Route: 048
  3. OXALIPLATIN [Suspect]
     Indication: RECTAL CANCER
     Route: 042

REACTIONS (3)
  - LARGE INTESTINE PERFORATION [None]
  - PERITONITIS [None]
  - RECTAL PERFORATION [None]
